FAERS Safety Report 14108866 (Version 4)
Quarter: 2017Q4

REPORT INFORMATION
  Report Type: Spontaneous
  Country: US (occurrence: US)
  Receive Date: 20171019
  Receipt Date: 20171225
  Transmission Date: 20180321
  Serious: Yes (Other)
  Sender: FDA-Public Use
  Company Number: US-TEVA-817577USA

PATIENT
  Sex: Female

DRUGS (1)
  1. ESTRADIOL. [Suspect]
     Active Substance: ESTRADIOL
     Route: 067
     Dates: start: 201709, end: 201710

REACTIONS (6)
  - Uterine cervical laceration [Recovered/Resolved]
  - Cervix haemorrhage uterine [Recovered/Resolved]
  - Urinary tract infection [Recovered/Resolved]
  - Device malfunction [Unknown]
  - Vulvovaginal pain [Recovered/Resolved]
  - Vaginal haemorrhage [Recovered/Resolved]
